FAERS Safety Report 25725102 (Version 1)
Quarter: 2025Q3

REPORT INFORMATION
  Report Type: Spontaneous
  Country: TR (occurrence: TR)
  Receive Date: 20250826
  Receipt Date: 20250826
  Transmission Date: 20251021
  Serious: Yes (Other)
  Sender: ALKEM
  Company Number: TR-ALKEM LABORATORIES LIMITED-GB-ALKEM-2025-07085

PATIENT
  Age: 25 Year
  Sex: Male

DRUGS (9)
  1. PREGABALIN [Suspect]
     Active Substance: PREGABALIN
     Indication: Analgesic therapy
     Dosage: 300 MILLIGRAM, QD, (ONCE IN TWO DAYS OR DAILY)
     Route: 065
  2. PREGABALIN [Suspect]
     Active Substance: PREGABALIN
     Route: 065
  3. PREGABALIN [Suspect]
     Active Substance: PREGABALIN
     Route: 065
  4. PREGABALIN [Suspect]
     Active Substance: PREGABALIN
     Route: 065
  5. PREGABALIN [Suspect]
     Active Substance: PREGABALIN
     Dosage: 150 MILLIGRAM, ONCE WEEKLY
     Route: 065
  6. NAPROXEN [Suspect]
     Active Substance: NAPROXEN
     Indication: Back pain
     Route: 065
  7. TENOXICAM [Suspect]
     Active Substance: TENOXICAM
     Indication: Back pain
     Route: 065
  8. METHAMPHETAMINE [Concomitant]
     Active Substance: METHAMPHETAMINE
     Indication: Product used for unknown indication
     Route: 065
  9. SERTRALINE [Concomitant]
     Active Substance: SERTRALINE HYDROCHLORIDE
     Indication: Antipsychotic therapy
     Route: 065

REACTIONS (14)
  - Drug use disorder [Unknown]
  - Drug abuse [Unknown]
  - Drug dependence [Unknown]
  - Overdose [Unknown]
  - Sleep inertia [Unknown]
  - Decreased appetite [Unknown]
  - Dysphoria [Unknown]
  - Ocular hyperaemia [Unknown]
  - Withdrawal syndrome [Unknown]
  - Euphoric mood [Unknown]
  - Insomnia [Unknown]
  - Restlessness [Unknown]
  - Intentional product misuse [Unknown]
  - Therapy partial responder [Unknown]
